FAERS Safety Report 17998933 (Version 1)
Quarter: 2020Q3

REPORT INFORMATION
  Report Type: Spontaneous
  Country: US (occurrence: US)
  Receive Date: 20200708
  Receipt Date: 20200708
  Transmission Date: 20201103
  Serious: Yes (Hospitalization)
  Sender: FDA-Public Use
  Company Number: None

PATIENT
  Age: 63 Year
  Sex: Female

DRUGS (19)
  1. CELLCEPT [Concomitant]
     Active Substance: MYCOPHENOLATE MOFETIL\MYCOPHENOLATE MOFETIL HYDROCHLORIDE
  2. PANTOPRAZOLE [Concomitant]
     Active Substance: PANTOPRAZOLE
  3. VALGANCICLOV [Concomitant]
  4. CREON [Concomitant]
     Active Substance: PANCRELIPASE AMYLASE\PANCRELIPASE LIPASE\PANCRELIPASE PROTEASE
  5. LEVOTHYROXINE. [Concomitant]
     Active Substance: LEVOTHYROXINE
  6. NEORAL [Suspect]
     Active Substance: CYCLOSPORINE
     Indication: LUNG TRANSPLANT
     Route: 048
     Dates: start: 20131127
  7. CLONIDINE. [Concomitant]
     Active Substance: CLONIDINE
  8. LANTUS SOLOSTAR [Concomitant]
     Active Substance: INSULIN GLARGINE
  9. VITAMIN D2 [Concomitant]
     Active Substance: ERGOCALCIFEROL
  10. CALCITRIOL. [Concomitant]
     Active Substance: CALCITRIOL
  11. FOLIC ACID. [Concomitant]
     Active Substance: FOLIC ACID
  12. METOCLOPRAM [Concomitant]
     Active Substance: METOCLOPRAMIDE
  13. ELIQUIS [Concomitant]
     Active Substance: APIXABAN
  14. GABAPENTIN. [Concomitant]
     Active Substance: GABAPENTIN
  15. PREDNISONE. [Concomitant]
     Active Substance: PREDNISONE
  16. RALOXIFENE. [Concomitant]
     Active Substance: RALOXIFENE
  17. DEKAS PLUS [Concomitant]
  18. HUMALOG CART [Concomitant]
  19. METOPROLOL. [Concomitant]
     Active Substance: METOPROLOL

REACTIONS (1)
  - Colectomy [None]

NARRATIVE: CASE EVENT DATE: 20200625
